FAERS Safety Report 7451257-4 (Version None)
Quarter: 2011Q2

REPORT INFORMATION
  Report Type: 
  Country: None (occurrence: None)
  Receive Date: 20110422
  Receipt Date: 20110411
  Transmission Date: 20111010
  Serious: Yes (Death)
  Sender: FDA-Public Use
  Company Number: 814885

PATIENT
  Age: 57 Year
  Sex: Male
  Weight: 100 kg

DRUGS (6)
  1. ATIVAN [Suspect]
     Indication: ALCOHOL WITHDRAWAL SYNDROME
     Dosage: PRN Q 1-2 HOURS, INTRAVENOUS
     Route: 042
  2. VERSED [Suspect]
     Indication: ALCOHOL WITHDRAWAL SYNDROME
     Dosage: PRN Q 1-2 HOURS, INTRAVENOUS
     Route: 042
  3. PRECEDEX [Suspect]
     Indication: ALCOHOL WITHDRAWAL SYNDROME
     Dosage: INTRAVENOUS DRIP
     Route: 041
     Dates: start: 20110111
  4. HALDOL [Suspect]
     Indication: ALCOHOL WITHDRAWAL SYNDROME
     Dosage: PRN Q 1-2 HOURS, INTRAVENOUS
     Route: 042
  5. FENTANYL CITRATE [Suspect]
     Indication: ALCOHOL WITHDRAWAL SYNDROME
     Dosage: PRN Q 1-2 HOURS, INTRAVENOUS; INTRAVENOUS
     Route: 042
  6. FENTANYL CITRATE [Suspect]
     Indication: PAIN MANAGEMENT
     Dosage: PRN Q 1-2 HOURS, INTRAVENOUS; INTRAVENOUS
     Route: 042

REACTIONS (9)
  - PAIN [None]
  - TREMOR [None]
  - PYREXIA [None]
  - CARDIO-RESPIRATORY ARREST [None]
  - NEUROLOGICAL DECOMPENSATION [None]
  - THERAPEUTIC RESPONSE DECREASED [None]
  - HYPERTENSION [None]
  - TACHYCARDIA [None]
  - COGNITIVE DISORDER [None]
